FAERS Safety Report 8340425-5 (Version None)
Quarter: 2012Q2

REPORT INFORMATION
  Report Type: 
  Country: None (occurrence: None)
  Receive Date: 20120507
  Receipt Date: 20120507
  Transmission Date: 20120825
  Serious: Yes (Other)
  Sender: FDA-Public Use
  Company Number: None

PATIENT
  Sex: Female
  Weight: 71.667 kg

DRUGS (1)
  1. ACT RESTORING MOUTHWASH [Suspect]
     Indication: DENTAL CARIES
     Dosage: |DOSAGETEXT: 10 MILLIMETERS INTO CAP||STRENGTH: SODIUM FLUORIDE 0.02%||FREQ: 2 X A DAY||ROUTE: DENTA
     Route: 004
     Dates: start: 20120418, end: 20120418

REACTIONS (2)
  - LIP SWELLING [None]
  - FEELING HOT [None]
